FAERS Safety Report 9143707 (Version 2)
Quarter: 2013Q4

REPORT INFORMATION
  Report Type: Report from Study
  Country: CA (occurrence: CA)
  Receive Date: 20130306
  Receipt Date: 20131206
  Transmission Date: 20140711
  Serious: Yes (Other)
  Sender: FDA-Public Use
  Company Number: CA-ROCHE-1198645

PATIENT
  Sex: Male

DRUGS (1)
  1. LUCENTIS [Suspect]
     Indication: DIABETIC RETINAL OEDEMA
     Route: 050
     Dates: start: 201207

REACTIONS (4)
  - Macular oedema [Unknown]
  - Retinal oedema [Unknown]
  - Diabetic retinal oedema [Unknown]
  - Visual acuity reduced [Unknown]
